FAERS Safety Report 22000516 (Version 1)
Quarter: 2023Q1

REPORT INFORMATION
  Report Type: Report from Study
  Country: US (occurrence: US)
  Receive Date: 20230216
  Receipt Date: 20230216
  Transmission Date: 20230418
  Serious: Yes (Hospitalization)
  Sender: FDA-Public Use
  Company Number: US-SA-SAC20230215000152

PATIENT
  Age: 55 Year
  Sex: Female

DRUGS (1)
  1. BELUMOSUDIL MESYLATE [Suspect]
     Active Substance: BELUMOSUDIL MESYLATE
     Dosage: 200 MG, QD
     Route: 048
     Dates: start: 20210907

REACTIONS (2)
  - Tachycardia [Unknown]
  - Fluid retention [Unknown]

NARRATIVE: CASE EVENT DATE: 20230206
